FAERS Safety Report 24780480 (Version 1)
Quarter: 2024Q4

REPORT INFORMATION
  Report Type: Spontaneous
  Country: ES (occurrence: ES)
  Receive Date: 20241227
  Receipt Date: 20241227
  Transmission Date: 20250114
  Serious: Yes (Hospitalization)
  Sender: AUROBINDO
  Company Number: ES-AEMPS-1605378

PATIENT
  Age: 57 Year
  Sex: Female

DRUGS (4)
  1. GABAPENTIN [Suspect]
     Active Substance: GABAPENTIN
     Indication: Back pain
     Dosage: 600 MILLIGRAM, ONCE A DAY (300MG AT BREAKFAST AND LUNCH)
     Route: 048
     Dates: start: 20241120, end: 20241130
  2. ZALDIAR [Concomitant]
     Active Substance: ACETAMINOPHEN\TRAMADOL HYDROCHLORIDE
     Indication: Back pain
     Dosage: 2 DOSAGE FORM, 3 TIMES A DAY (2-2-2)
     Route: 048
     Dates: start: 20230619
  3. METAMIZOL [Concomitant]
     Active Substance: METAMIZOLE SODIUM
     Indication: Back pain
     Dosage: 575 MILLIGRAM, 3 TIMES A DAY (575MG EVERY 8 HOURS)
     Route: 048
     Dates: start: 20240308, end: 20241130
  4. PREGABALIN [Concomitant]
     Active Substance: PREGABALIN
     Indication: Back pain
     Dosage: 75 MILLIGRAM, ONCE A DAY (75MG EVERY 24 HOURS)
     Route: 048
     Dates: start: 20240524, end: 20241120

REACTIONS (1)
  - Psychotic disorder [Recovered/Resolved]

NARRATIVE: CASE EVENT DATE: 20241129
